FAERS Safety Report 8228365-3 (Version None)
Quarter: 2012Q1

REPORT INFORMATION
  Report Type: 
  Country: None (occurrence: None)
  Receive Date: 20120322
  Receipt Date: 20110909
  Transmission Date: 20120608
  Serious: No
  Sender: FDA-Public Use
  Company Number: US-BRISTOL-MYERS SQUIBB COMPANY-16021396

PATIENT
  Age: 61 Year
  Sex: Male

DRUGS (2)
  1. DOCETAXEL [Concomitant]
  2. ERBITUX [Suspect]
     Dosage: LAST ERBITUX INFUSION ON 21AUG2011.

REACTIONS (1)
  - EXPIRED DRUG ADMINISTERED [None]
